FAERS Safety Report 14309581 (Version 3)
Quarter: 2018Q3

REPORT INFORMATION
  Report Type: Spontaneous
  Country: AT (occurrence: AT)
  Receive Date: 20171220
  Receipt Date: 20180904
  Transmission Date: 20181010
  Serious: Yes (Life-Threatening, Other)
  Sender: FDA-Public Use
  Company Number: AT-CELLTRION INC.-2017AT017183

PATIENT

DRUGS (9)
  1. LAMICTAL [Concomitant]
     Active Substance: LAMOTRIGINE
     Dosage: UNK
  2. IVADAL [Concomitant]
     Active Substance: ZOLPIDEM TARTRATE
     Dosage: UNK
  3. INFLECTRA [Suspect]
     Active Substance: INFLIXIMAB-DYYB
     Indication: SPONDYLOARTHROPATHY
     Dosage: 300 MG (3 X 100 MG)
     Route: 042
     Dates: start: 20170926
  4. DEPAKINE RETARD [Concomitant]
     Active Substance: VALPROIC ACID
     Dosage: UNK
  5. PANTOLOC CONTROL [Concomitant]
  6. CYMBALTA [Concomitant]
     Active Substance: DULOXETINE HYDROCHLORIDE
  7. LYRICA [Concomitant]
     Active Substance: PREGABALIN
  8. CELEBREX [Concomitant]
     Active Substance: CELECOXIB
     Dosage: UNK
  9. DOMINAL (PROTHIPENDYL HYDROCHLORIDE) [Concomitant]
     Active Substance: PROTHIPENDYL HYDROCHLORIDE
     Dosage: UNK

REACTIONS (2)
  - Anaphylactic reaction [Recovered/Resolved]
  - Product use in unapproved indication [Unknown]
